FAERS Safety Report 8238039-0 (Version None)
Quarter: 2012Q1

REPORT INFORMATION
  Report Type: 
  Country: None (occurrence: None)
  Receive Date: 20120327
  Receipt Date: 20120322
  Transmission Date: 20120608
  Serious: Yes (Life-Threatening, Hospitalization)
  Sender: FDA-Public Use
  Company Number: BR-GLAXOSMITHKLINE-A0938040A

PATIENT
  Sex: Female
  Weight: 100 kg

DRUGS (3)
  1. CORTISONE ACETATE [Concomitant]
  2. PROMACTA [Suspect]
     Indication: IDIOPATHIC THROMBOCYTOPENIC PURPURA
     Dosage: 50MG SEE DOSAGE TEXT
     Route: 048
     Dates: start: 20110501, end: 20111101
  3. CORTICOSTEROID [Concomitant]

REACTIONS (10)
  - THROMBOCYTOPENIA [None]
  - EPISTAXIS [None]
  - VAGINAL HAEMORRHAGE [None]
  - ANAL HAEMORRHAGE [None]
  - PLATELET COUNT DECREASED [None]
  - THROMBOSIS [None]
  - THROMBOCYTOSIS [None]
  - PLATELET COUNT INCREASED [None]
  - REBOUND EFFECT [None]
  - BLINDNESS UNILATERAL [None]
